FAERS Safety Report 10654382 (Version 1)
Quarter: 2014Q4

REPORT INFORMATION
  Report Type: Spontaneous
  Country: IT (occurrence: None)
  Receive Date: 20141212
  Receipt Date: 20141212
  Transmission Date: 20150529
  Serious: Yes (Hospitalization)
  Sender: FDA-Public Use
  Company Number: FK201406073

PATIENT
  Age: 74 Year
  Sex: Female

DRUGS (3)
  1. FOLINIC ACID (FOLINIC ACID) [Concomitant]
  2. FLUOROURACIL (FLUOROURACIL) [Concomitant]
     Active Substance: FLUOROURACIL
  3. OXALIPLATIN (MANUFACTURER UNKNOWN) (OXALIPLATIN) (OXALIPLATIN) [Suspect]
     Active Substance: OXALIPLATIN
     Indication: ADENOCARCINOMA
     Route: 042

REACTIONS (3)
  - Paraesthesia [None]
  - Hypertensive crisis [None]
  - Laryngospasm [None]

NARRATIVE: CASE EVENT DATE: 20141111
